FAERS Safety Report 5983260-5 (Version None)
Quarter: 2008Q4

REPORT INFORMATION
  Report Type: 
  Country: None (occurrence: None)
  Receive Date: 20081205
  Receipt Date: 20081205
  Transmission Date: 20090506
  Serious: Yes (Disabling)
  Sender: FDA-Public Use
  Company Number: None

PATIENT
  Age: 61 Year
  Sex: Female
  Weight: 97.5234 kg

DRUGS (2)
  1. ABILIFY [Suspect]
     Indication: BIPOLAR DISORDER
     Dates: start: 20070401
  2. IMIPRAMINE [Suspect]
     Indication: BIPOLAR DISORDER

REACTIONS (2)
  - DYSKINESIA [None]
  - MUSCULOSKELETAL STIFFNESS [None]
